FAERS Safety Report 14221045 (Version 1)
Quarter: 2017Q4

REPORT INFORMATION
  Report Type: Spontaneous
  Country: FI (occurrence: FI)
  Receive Date: 20171124
  Receipt Date: 20171124
  Transmission Date: 20180321
  Serious: Yes (Other)
  Sender: FDA-Public Use
  Company Number: FI-PFIZER INC-2017478334

PATIENT
  Sex: Female
  Weight: 61 kg

DRUGS (5)
  1. DIUREX MITE [Concomitant]
     Dosage: 1 DF, 1X/DAY
  2. ADALAT [Concomitant]
     Active Substance: NIFEDIPINE
     Dosage: 30 MG, 1X/DAY
  3. SIMVASTATIN ORION [Concomitant]
     Active Substance: SIMVASTATIN
     Dosage: 20 MG, ALTERNATE DAY
  4. SALAZOPYRIN EN [Suspect]
     Active Substance: SULFASALAZINE
     Indication: RHEUMATOID ARTHRITIS
     Dosage: 2 DF, 2X/DAY
     Route: 048
     Dates: start: 20161031, end: 2017
  5. BURANA [Concomitant]
     Active Substance: IBUPROFEN
     Dosage: UNK

REACTIONS (2)
  - Tongue blistering [Recovered/Resolved]
  - Blister [Recovered/Resolved]
